FAERS Safety Report 9052556 (Version 1)
Quarter: 2013Q1

REPORT INFORMATION
  Report Type: Report from Study
  Country: DE (occurrence: DE)
  Receive Date: 20130207
  Receipt Date: 20130207
  Transmission Date: 20140127
  Serious: Yes (Death, Hospitalization)
  Sender: FDA-Public Use
  Company Number: DE-GENZYME-CAMP-1002712

PATIENT
  Sex: Female
  Weight: 50 kg

DRUGS (4)
  1. CAMPATH [Suspect]
     Indication: T-CELL PROLYMPHOCYTIC LEUKAEMIA
     Dosage: 10.0 MG, QD
     Route: 058
     Dates: start: 20120925
  2. FLUDARA [Suspect]
     Indication: T-CELL PROLYMPHOCYTIC LEUKAEMIA
     Dosage: 31.8 MG, QD
     Route: 042
     Dates: start: 20120925
  3. MITOXANTRONE [Suspect]
     Indication: T-CELL PROLYMPHOCYTIC LEUKAEMIA
     Dosage: 9.5 MG, QD
     Route: 042
     Dates: start: 20120925
  4. CYCLOPHOSPHAMIDE [Suspect]
     Indication: T-CELL PROLYMPHOCYTIC LEUKAEMIA
     Dosage: 318.0 MG, QD
     Route: 042
     Dates: start: 20120925

REACTIONS (3)
  - Loss of consciousness [Unknown]
  - Sepsis [Fatal]
  - Urinary tract infection [Fatal]
